FAERS Safety Report 9365814 (Version 7)
Quarter: 2014Q3

REPORT INFORMATION
  Report Type: Report from Study
  Country: CA (occurrence: CA)
  Receive Date: 20130625
  Receipt Date: 20140723
  Transmission Date: 20150326
  Serious: Yes (Hospitalization, Other)
  Sender: FDA-Public Use
  Company Number: PHHY2013CA064268

PATIENT
  Age: 68 Year
  Sex: Male

DRUGS (5)
  1. OMEPRAZOLE. [Concomitant]
     Active Substance: OMEPRAZOLE
     Dosage: 200 MG, QD
     Dates: start: 20140115
  2. SANDOSTATIN LAR DEPOT [Suspect]
     Active Substance: OCTREOTIDE ACETATE
     Dosage: 50 MG, EVERY 4 WEEKS
     Route: 030
  3. OMEPRAZOLE. [Concomitant]
     Active Substance: OMEPRAZOLE
     Dosage: 100 MG, UNK
     Route: 030
  4. SANDOSTATIN LAR DEPOT [Suspect]
     Active Substance: OCTREOTIDE ACETATE
     Indication: SMALL INTESTINE CARCINOMA
     Dosage: 30 MG, EVERY 4 WEEKS
     Route: 030
     Dates: start: 20090320
  5. OMEPRAZOLE. [Concomitant]
     Active Substance: OMEPRAZOLE
     Dosage: 100 MG, UNK
     Dates: start: 20140105, end: 20140110

REACTIONS (14)
  - Nephrolithiasis [Unknown]
  - Umbilical hernia [Unknown]
  - Pain [Unknown]
  - Malignant neoplasm progression [Unknown]
  - Gastroenteritis [Recovered/Resolved]
  - Abdominal pain [Recovered/Resolved]
  - Blood urine present [Unknown]
  - Sleep disorder [Unknown]
  - Frequent bowel movements [Unknown]
  - Hepatic lesion [Unknown]
  - Intestinal obstruction [Recovered/Resolved]
  - Protein urine [Unknown]
  - Bilirubin urine [Unknown]
  - Diarrhoea [Unknown]

NARRATIVE: CASE EVENT DATE: 2009
